FAERS Safety Report 9220582 (Version 2)
Quarter: 2013Q2

REPORT INFORMATION
  Report Type: Spontaneous
  Country: US (occurrence: US)
  Receive Date: 20130409
  Receipt Date: 20130415
  Transmission Date: 20140414
  Serious: No
  Sender: FDA-Public Use
  Company Number: US-009507513-1304USA003334

PATIENT
  Age: 80 Year
  Sex: Female

DRUGS (4)
  1. DULERA [Suspect]
     Indication: CHRONIC OBSTRUCTIVE PULMONARY DISEASE
     Dosage: UNK UNK, QID
     Dates: start: 20130315
  2. DULERA [Suspect]
     Indication: NASOPHARYNGITIS
  3. ALBUTEROL [Suspect]
  4. SPIRIVA [Concomitant]

REACTIONS (2)
  - Dyspnoea [Recovered/Resolved]
  - Product quality issue [Unknown]
